FAERS Safety Report 7860140-1 (Version None)
Quarter: 2011Q4

REPORT INFORMATION
  Report Type: 
  Country: None (occurrence: None)
  Receive Date: 20111027
  Receipt Date: 20111020
  Transmission Date: 20120403
  Serious: Yes (Other)
  Sender: FDA-Public Use
  Company Number: SA-BAYER-2011-103830

PATIENT

DRUGS (1)
  1. REFLUDAN [Suspect]
     Indication: HEPARIN-INDUCED THROMBOCYTOPENIA
     Route: 042

REACTIONS (3)
  - HAEMORRHAGE [None]
  - EMBOLISM [None]
  - THROMBOCYTOPENIA [None]
